FAERS Safety Report 9088008 (Version 1)
Quarter: 2013Q1

REPORT INFORMATION
  Report Type: Report from Study
  Country: US (occurrence: US)
  Receive Date: 20130130
  Receipt Date: 20130130
  Transmission Date: 20140127
  Serious: No
  Sender: FDA-Public Use
  Company Number: US-ABBOTT-12P-163-0953194-00

PATIENT
  Age: 70 Year
  Sex: Female

DRUGS (7)
  1. HUMIRA 40 MG/0.8 ML PEN [Suspect]
     Indication: PSORIASIS
     Dates: start: 20111111
  2. ACCUPRIL [Concomitant]
     Indication: HYPERTENSION
     Dosage: EVERY DAY
  3. FISH OIL [Concomitant]
     Indication: PROPHYLAXIS
  4. FLAX SEED [Concomitant]
     Indication: PROPHYLAXIS
  5. PRESERVISION [Concomitant]
     Indication: EYE LASER SURGERY
     Dosage: EVERY DAY
  6. BABY ASPIRIN [Concomitant]
     Indication: PROPHYLAXIS
     Dosage: TWO EVERY DAY
  7. PRILOSEC [Concomitant]
     Indication: GASTROOESOPHAGEAL REFLUX DISEASE
     Dosage: EVERY DAY

REACTIONS (1)
  - Nasopharyngitis [Recovered/Resolved]
